FAERS Safety Report 4833324-4 (Version None)
Quarter: 2005Q4

REPORT INFORMATION
  Report Type: 
  Country: None (occurrence: None)
  Receive Date: 20051117
  Receipt Date: 20051108
  Transmission Date: 20060501
  Serious: Yes (Hospitalization, Other)
  Sender: FDA-Public Use
  Company Number: 2005073099

PATIENT
  Age: 64 Year
  Sex: Female

DRUGS (4)
  1. DOXORUBICIN HCL [Suspect]
     Indication: OVARIAN CANCER
     Dosage: SEE IMAGE
     Route: 042
     Dates: start: 20040906, end: 20041129
  2. DOXORUBICIN HCL [Suspect]
     Indication: OVARIAN CANCER
     Dosage: SEE IMAGE
     Route: 042
     Dates: start: 20041004
  3. DOXORUBICIN HCL [Suspect]
     Indication: OVARIAN CANCER
     Dosage: SEE IMAGE
     Route: 042
     Dates: start: 20041101
  4. DOXORUBICIN HCL [Suspect]
     Indication: OVARIAN CANCER
     Dosage: SEE IMAGE
     Route: 042
     Dates: start: 20041129

REACTIONS (7)
  - DRUG INEFFECTIVE [None]
  - ERYTHEMA [None]
  - PALMAR-PLANTAR ERYTHRODYSAESTHESIA SYNDROME [None]
  - PERICARDIAL EFFUSION [None]
  - PLEURAL EFFUSION [None]
  - PRURITUS [None]
  - SKIN IRRITATION [None]
